FAERS Safety Report 8602745-6 (Version None)
Quarter: 2012Q3

REPORT INFORMATION
  Report Type: 
  Country: None (occurrence: None)
  Receive Date: 20120817
  Receipt Date: 20120809
  Transmission Date: 20120928
  Serious: Yes (Death)
  Sender: FDA-Public Use
  Company Number: DK-EISAI INC-E7389-02840-SPO-DK

PATIENT
  Age: 56 Year
  Sex: Female

DRUGS (1)
  1. HALAVEN [Suspect]
     Dates: start: 20120518, end: 20120518

REACTIONS (1)
  - BONE MARROW FAILURE [None]
